FAERS Safety Report 16824252 (Version 1)
Quarter: 2019Q3

REPORT INFORMATION
  Report Type: Other
  Country: CA (occurrence: CA)
  Receive Date: 20190918
  Receipt Date: 20190918
  Transmission Date: 20191005
  Serious: Yes (Other)
  Sender: FDA-Public Use
  Company Number: CA-BECTON DICKINSON-2019BDN00328

PATIENT
  Age: 42 Year
  Sex: Female
  Weight: 81 kg

DRUGS (33)
  1. ARAVA [Suspect]
     Active Substance: LEFLUNOMIDE
  2. ENBREL [Suspect]
     Active Substance: ETANERCEPT
     Indication: RHEUMATOID ARTHRITIS
     Route: 058
  3. ORENCIA [Suspect]
     Active Substance: ABATACEPT
  4. FISH OIL [Concomitant]
     Active Substance: FISH OIL
  5. REACTINE [Concomitant]
  6. TYLENOL [Concomitant]
     Active Substance: ACETAMINOPHEN
  7. VITAMIN C [Concomitant]
     Active Substance: ASCORBIC ACID
  8. VITAMIN D3 [Concomitant]
     Active Substance: CHOLECALCIFEROL
  9. CIMZIA [Suspect]
     Active Substance: CERTOLIZUMAB PEGOL
     Dosage: 400.0 MG
     Route: 058
  10. OXYCODONE [Suspect]
     Active Substance: OXYCODONE
  11. COENZYME Q10 [Concomitant]
     Active Substance: UBIDECARENONE
  12. IBUPROFEN. [Concomitant]
     Active Substance: IBUPROFEN
  13. PANTOPRAZOLE [Concomitant]
     Active Substance: PANTOPRAZOLE
  14. PLAQUENIL [Concomitant]
     Active Substance: HYDROXYCHLOROQUINE SULFATE
  15. VENTOLIN [Concomitant]
     Active Substance: ALBUTEROL SULFATE
  16. ACTEMRA [Suspect]
     Active Substance: TOCILIZUMAB
  17. CIMZIA [Suspect]
     Active Substance: CERTOLIZUMAB PEGOL
     Indication: RHEUMATOID ARTHRITIS
     Dosage: 400.0 MG
     Route: 058
  18. CHLORHEXIDINE [Suspect]
     Active Substance: CHLORHEXIDINE
  19. ZOPICLONE [Concomitant]
     Active Substance: ZOPICLONE
  20. METHOTREXATE. [Suspect]
     Active Substance: METHOTREXATE
  21. OXYCODONE/ACETAMINOPHEN [Suspect]
     Active Substance: ACETAMINOPHEN\OXYCODONE HYDROCHLORIDE
  22. DESOGESTREL/ETHINYL ESTRADIOL [Concomitant]
     Active Substance: DESOGESTREL\ETHINYL ESTRADIOL
  23. PANTOLOC [Concomitant]
     Active Substance: PANTOPRAZOLE SODIUM
  24. ACETAMINOPHEN. [Suspect]
     Active Substance: ACETAMINOPHEN
  25. SIMPONI [Suspect]
     Active Substance: GOLIMUMAB
     Route: 058
  26. D-ALPHA TOCOPHEROL [Concomitant]
     Active Substance: .ALPHA.-TOCOPHEROL, D-
  27. PREDNISONE. [Concomitant]
     Active Substance: PREDNISONE
  28. VITAMIN D [Concomitant]
     Active Substance: VITAMIN D NOS
  29. ACETAMINOPHEN/OXYCODONE HYDROCHLORIDE/OXYCODONE TEREPHTHALATE [Suspect]
     Active Substance: ACETAMINOPHEN\OXYCODONE HYDROCHLORIDE\OXYCODONE TEREPHTHALATE
  30. CIMZIA [Suspect]
     Active Substance: CERTOLIZUMAB PEGOL
     Dosage: 200.0 MG
     Route: 058
  31. LEFLUNOMIDE. [Suspect]
     Active Substance: LEFLUNOMIDE
  32. ERGOCALCIFEROL. [Concomitant]
     Active Substance: ERGOCALCIFEROL
  33. HYDROXYCHLOROQUINE [Concomitant]
     Active Substance: HYDROXYCHLOROQUINE

REACTIONS (20)
  - Pain [Unknown]
  - Urticaria [Unknown]
  - Asthenia [Unknown]
  - Headache [Unknown]
  - Night sweats [Unknown]
  - Back pain [Unknown]
  - Body temperature increased [Unknown]
  - Lower respiratory tract infection [Unknown]
  - Vomiting [Unknown]
  - Abdominal pain upper [Unknown]
  - Joint swelling [Unknown]
  - Sinusitis [Unknown]
  - Diarrhoea [Unknown]
  - Insomnia [Unknown]
  - Rash [Unknown]
  - Peripheral swelling [Unknown]
  - Respiratory disorder [Unknown]
  - Ear pain [Unknown]
  - Muscle spasticity [Unknown]
  - Pruritus generalised [Unknown]
